FAERS Safety Report 6178168-9 (Version None)
Quarter: 2009Q2

REPORT INFORMATION
  Report Type: 
  Country: None (occurrence: None)
  Receive Date: 20090504
  Receipt Date: 20090219
  Transmission Date: 20091009
  Serious: No
  Sender: FDA-Public Use
  Company Number: US-ALEXION-A200900137

PATIENT
  Sex: Female

DRUGS (5)
  1. SOLIRIS [Suspect]
     Indication: PAROXYSMAL NOCTURNAL HAEMOGLOBINURIA
     Dosage: 600 MG, QWK
     Route: 042
     Dates: start: 20070911, end: 20071010
  2. SOLIRIS [Suspect]
     Dosage: 900 MG, Q2WKS
     Route: 042
     Dates: start: 20071017
  3. NORVASC [Concomitant]
     Indication: HYPERTENSION
     Dosage: 10 MG, QD
     Route: 048
  4. IRON [Concomitant]
     Indication: PAROXYSMAL NOCTURNAL HAEMOGLOBINURIA
     Dosage: UNK
     Route: 048
  5. FOLATE [Concomitant]
     Indication: PAROXYSMAL NOCTURNAL HAEMOGLOBINURIA
     Dosage: 1 MG, QD
     Route: 048

REACTIONS (3)
  - ANAEMIA [None]
  - MENORRHAGIA [None]
  - PANIC ATTACK [None]
